FAERS Safety Report 19674548 (Version 1)
Quarter: 2021Q3

REPORT INFORMATION
  Report Type: Spontaneous
  Country: US (occurrence: US)
  Receive Date: 20210809
  Receipt Date: 20210809
  Transmission Date: 20211014
  Serious: No
  Sender: FDA-Public Use
  Company Number: None

PATIENT
  Age: 67 Year
  Sex: Female
  Weight: 83.25 kg

DRUGS (18)
  1. TRAZODONE [Concomitant]
     Active Substance: TRAZODONE HYDROCHLORIDE
  2. CEPHALEXIN. [Concomitant]
     Active Substance: CEPHALEXIN
  3. METOPROLOL. [Concomitant]
     Active Substance: METOPROLOL
  4. MAGNESIUM OXIDE. [Concomitant]
     Active Substance: MAGNESIUM OXIDE
  5. SPIRONOLACTONE. [Concomitant]
     Active Substance: SPIRONOLACTONE
  6. ELIQUIS [Concomitant]
     Active Substance: APIXABAN
  7. VITAMIN C [Concomitant]
     Active Substance: ASCORBIC ACID
  8. JARDIANCE [Suspect]
     Active Substance: EMPAGLIFLOZIN
     Indication: CARDIAC DISORDER
     Dosage: ?          QUANTITY:1 TABLET(S);?
     Route: 048
     Dates: start: 20210604, end: 20210703
  9. RAPAMUNE [Concomitant]
     Active Substance: SIROLIMUS
  10. LATANPROST [Concomitant]
     Active Substance: LATANOPROST
  11. VITAMIN D [Concomitant]
     Active Substance: VITAMIN D NOS
  12. FUROSEMIDE. [Concomitant]
     Active Substance: FUROSEMIDE
  13. AZELASTINE. [Concomitant]
     Active Substance: AZELASTINE HYDROCHLORIDE
  14. FLUTICASONE PROPIONATE. [Concomitant]
     Active Substance: FLUTICASONE PROPIONATE
  15. OXYGEN. [Concomitant]
     Active Substance: OXYGEN
  16. DULOXETINE. [Concomitant]
     Active Substance: DULOXETINE
  17. GLIMEPRIDE [Concomitant]
     Active Substance: GLIMEPIRIDE
  18. ATORVASTATIN [Concomitant]
     Active Substance: ATORVASTATIN

REACTIONS (3)
  - Dehydration [None]
  - Fungal infection [None]
  - Therapy cessation [None]

NARRATIVE: CASE EVENT DATE: 20210617
